FAERS Safety Report 22060284 (Version 1)
Quarter: 2023Q1

REPORT INFORMATION
  Report Type: Spontaneous
  Country: US (occurrence: US)
  Receive Date: 20230303
  Receipt Date: 20230303
  Transmission Date: 20230418
  Serious: No
  Sender: FDA-Public Use
  Company Number: US-VYERA PHARMACEUTICALS, LLC-2022VYE00006

PATIENT
  Age: 38 Year
  Sex: Female
  Weight: 82 kg

DRUGS (3)
  1. DARAPRIM [Suspect]
     Active Substance: PYRIMETHAMINE
     Indication: Toxoplasmosis
     Dosage: 75 MG, 1X/DAY
     Route: 048
     Dates: start: 20220215
  2. LEUCOVORIN [Concomitant]
     Active Substance: LEUCOVORIN
  3. SULFADIAZINE [Concomitant]
     Active Substance: SULFADIAZINE

REACTIONS (1)
  - Dry mouth [Unknown]

NARRATIVE: CASE EVENT DATE: 20220201
